FAERS Safety Report 18986807 (Version 3)
Quarter: 2021Q2

REPORT INFORMATION
  Report Type: Spontaneous
  Country: US (occurrence: US)
  Receive Date: 20210309
  Receipt Date: 20210625
  Transmission Date: 20210717
  Serious: Yes (Other)
  Sender: FDA-Public Use
  Company Number: US-GILEAD-2021-0519943

PATIENT
  Age: 61 Year
  Sex: Male
  Weight: 102.95 kg

DRUGS (67)
  1. CALCIPOTRIENE. [Concomitant]
     Active Substance: CALCIPOTRIENE
  2. CICLOPIROX. [Concomitant]
     Active Substance: CICLOPIROX
  3. FINASTERIDE. [Concomitant]
     Active Substance: FINASTERIDE
  4. HALOBETASOL [Concomitant]
     Active Substance: HALOBETASOL PROPIONATE
  5. LABETALOL [Concomitant]
     Active Substance: LABETALOL\LABETALOL HYDROCHLORIDE
  6. MELOXICAM. [Concomitant]
     Active Substance: MELOXICAM
  7. ZOLPIDEM [Concomitant]
     Active Substance: ZOLPIDEM TARTRATE
  8. CEPHALEXINE [Concomitant]
     Active Substance: CEPHALEXIN
  9. DESONIDE. [Concomitant]
     Active Substance: DESONIDE
  10. HYDROQUINONE. [Concomitant]
     Active Substance: HYDROQUINONE
  11. METHYLPREDNISOLONE. [Concomitant]
     Active Substance: METHYLPREDNISOLONE
  12. NEVIRAPINE. [Concomitant]
     Active Substance: NEVIRAPINE
  13. PANTOPRAZOLE [Concomitant]
     Active Substance: PANTOPRAZOLE
  14. TAMSULOSIN [Concomitant]
     Active Substance: TAMSULOSIN
  15. TELMISARTAN. [Concomitant]
     Active Substance: TELMISARTAN
  16. JULUCA [Concomitant]
     Active Substance: DOLUTEGRAVIR SODIUM\RILPIVIRINE HYDROCHLORIDE
  17. AMOXICILLIN. [Concomitant]
     Active Substance: AMOXICILLIN
  18. AVODART [Concomitant]
     Active Substance: DUTASTERIDE
  19. BELSOMRA [Concomitant]
     Active Substance: SUVOREXANT
  20. CARVEDILOL. [Concomitant]
     Active Substance: CARVEDILOL
  21. CIPROFLOXACIN. [Concomitant]
     Active Substance: CIPROFLOXACIN
  22. FLUOCINOLONE [Concomitant]
     Active Substance: FLUOCINOLONE
  23. FLUOCINONIDE. [Concomitant]
     Active Substance: FLUOCINONIDE
  24. MILK THISTLE EXTRACT [Concomitant]
     Active Substance: DIETARY SUPPLEMENT\HERBALS\MILK THISTLE
  25. SALVAX [Concomitant]
     Active Substance: SALICYLIC ACID
  26. ANDROGEL [Concomitant]
     Active Substance: TESTOSTERONE
  27. CUTIVATE [CLOBETASOL PROPIONATE] [Concomitant]
  28. HIBICLENS [Concomitant]
     Active Substance: CHLORHEXIDINE GLUCONATE
  29. HYDROCORTISONE. [Concomitant]
     Active Substance: HYDROCORTISONE
  30. METOPROLOL. [Concomitant]
     Active Substance: METOPROLOL
  31. OXYCODONE [Concomitant]
     Active Substance: OXYCODONE
  32. SORIATANE [Concomitant]
     Active Substance: ACITRETIN
  33. VITAMIN C [Concomitant]
     Active Substance: ASCORBIC ACID
  34. ALPHA LIPOIC ACID [Concomitant]
     Active Substance: .ALPHA.-LIPOIC ACID
  35. CLINDAMYCIN PHOSPHATE. [Concomitant]
     Active Substance: CLINDAMYCIN PHOSPHATE
  36. IBUPROFEN. [Concomitant]
     Active Substance: IBUPROFEN
  37. PSORCON [Concomitant]
     Active Substance: DIFLORASONE DIACETATE
  38. TOPCORT [DESOXIMETASONE] [Concomitant]
  39. TRUVADA [Suspect]
     Active Substance: EMTRICITABINE\TENOFOVIR DISOPROXIL FUMARATE
     Indication: HIV INFECTION
     Dosage: UNK
     Route: 048
     Dates: start: 2008
  40. TRUVADA [Suspect]
     Active Substance: EMTRICITABINE\TENOFOVIR DISOPROXIL FUMARATE
     Dosage: UNK
     Route: 048
     Dates: start: 20110103, end: 201901
  41. AMLODIPINE BESILATE [Concomitant]
     Active Substance: AMLODIPINE BESYLATE
  42. FOLIC ACID. [Concomitant]
     Active Substance: FOLIC ACID
  43. HALOG [Concomitant]
     Active Substance: HALCINONIDE
  44. SORILUX [Concomitant]
     Active Substance: CALCIPOTRIENE
  45. TRIAMTERENE. [Concomitant]
     Active Substance: TRIAMTERENE
  46. VITAMIN D NOS [Concomitant]
     Active Substance: VITAMIN D NOS
  47. VIRAMUNE XR [Concomitant]
     Active Substance: NEVIRAPINE
  48. CIPRODEX [CIPROFLOXACIN HYDROCHLORIDE] [Concomitant]
     Active Substance: CIPROFLOXACIN HYDROCHLORIDE
  49. CLOBEX [CLOBETASOL PROPIONATE] [Concomitant]
  50. FLUCONAZOLE. [Concomitant]
     Active Substance: FLUCONAZOLE
  51. METHOTREXATE. [Concomitant]
     Active Substance: METHOTREXATE
  52. ONDANSETRON [Concomitant]
     Active Substance: ONDANSETRON
  53. PHENAZOPYRIDINE. [Concomitant]
     Active Substance: PHENAZOPYRIDINE
  54. TOVIAZ [Concomitant]
     Active Substance: FESOTERODINE FUMARATE
  55. DYAZIDE [Concomitant]
     Active Substance: HYDROCHLOROTHIAZIDE\TRIAMTERENE
  56. BETAMETHASONE. [Concomitant]
     Active Substance: BETAMETHASONE
  57. CIALIS [Concomitant]
     Active Substance: TADALAFIL
  58. CLOBETASOL [Concomitant]
     Active Substance: CLOBETASOL
  59. CLOTRIMAZOLE. [Concomitant]
     Active Substance: CLOTRIMAZOLE
  60. COMPRO [Concomitant]
     Active Substance: PROCHLORPERAZINE
  61. DIFLORASONE [Concomitant]
     Active Substance: DIFLORASONE DIACETATE
  62. HYDROCHLOROTHIAZIDE. [Concomitant]
     Active Substance: HYDROCHLOROTHIAZIDE
  63. MECLIZINE [Concomitant]
     Active Substance: MECLIZINE HYDROCHLORIDE
  64. METRONIDAZOLE. [Concomitant]
     Active Substance: METRONIDAZOLE
  65. MYRBETRIQ [Concomitant]
     Active Substance: MIRABEGRON
  66. NEOMYCIN. [Concomitant]
     Active Substance: NEOMYCIN
  67. TRIAMCINOLONE [Concomitant]
     Active Substance: TRIAMCINOLONE

REACTIONS (6)
  - Pain [Not Recovered/Not Resolved]
  - Chronic kidney disease [Not Recovered/Not Resolved]
  - Emotional distress [Not Recovered/Not Resolved]
  - Renal impairment [Unknown]
  - Anhedonia [Not Recovered/Not Resolved]
  - Anxiety [Not Recovered/Not Resolved]

NARRATIVE: CASE EVENT DATE: 201507
